FAERS Safety Report 5317230-7 (Version None)
Quarter: 2007Q2

REPORT INFORMATION
  Report Type: 
  Country: None (occurrence: None)
  Receive Date: 20070504
  Receipt Date: 20070423
  Transmission Date: 20071010
  Serious: Yes (Life-Threatening, Hospitalization)
  Sender: FDA-Public Use
  Company Number: NO-PFIZER INC-2007031885

PATIENT
  Sex: Male

DRUGS (32)
  1. ZYVOX [Suspect]
     Indication: SEPSIS
     Route: 042
     Dates: start: 20070306, end: 20070326
  2. DIPEPTIVEN [Concomitant]
  3. POTASSIUM CHLORIDE [Concomitant]
  4. CLONIDINE HCL [Concomitant]
  5. NOVORAPID [Concomitant]
  6. DICLOCIL [Concomitant]
  7. FURIX [Concomitant]
     Dosage: TEXT:USED INTERMITTENTLY, SEE PATIENT CHART
     Dates: start: 20070306, end: 20070326
  8. ABBOTICIN [Concomitant]
  9. CEFOTAXIME [Concomitant]
  10. NIFEDIPINE [Concomitant]
  11. METOPROLOL TARTRATE [Concomitant]
  12. DIFLUCAN [Concomitant]
  13. VALLERGAN [Concomitant]
  14. SOLU-CORTEF [Concomitant]
  15. KALIUM [Concomitant]
  16. VENTOLIN [Concomitant]
  17. FENTANYL [Concomitant]
  18. NIMBEX [Concomitant]
  19. FRAGMIN [Concomitant]
  20. SELO-ZOK [Concomitant]
  21. ALL OTHER THERAPEUTIC PRODUCTS [Concomitant]
  22. MERONEM [Concomitant]
  23. PANTOPRAZOLE SODIUM [Concomitant]
  24. TYGACIL [Concomitant]
  25. PROPOFOL [Concomitant]
  26. CLINDAMYCIN [Concomitant]
  27. ATROVENT [Concomitant]
  28. PARACET [Concomitant]
  29. LACTULOSE [Concomitant]
  30. SOBRIL [Concomitant]
  31. MIDAZOLAM HCL [Concomitant]
  32. HALDOL [Concomitant]

REACTIONS (2)
  - MYOPATHY [None]
  - NEUROPATHY PERIPHERAL [None]
